FAERS Safety Report 7648591-1 (Version None)
Quarter: 2011Q3

REPORT INFORMATION
  Report Type: 
  Country: None (occurrence: None)
  Receive Date: 20110801
  Receipt Date: 20110729
  Transmission Date: 20111222
  Serious: Yes (Other)
  Sender: FDA-Public Use
  Company Number: US-PFIZER INC-2011173580

PATIENT

DRUGS (2)
  1. LIPITOR [Suspect]
     Dosage: 40 MG, UNK
     Dates: start: 20101001, end: 20110301
  2. LIPITOR [Suspect]
     Dosage: 20 MG, UNK
     Dates: start: 20110301, end: 20110701

REACTIONS (1)
  - BLOOD CREATINE PHOSPHOKINASE INCREASED [None]
